FAERS Safety Report 11671450 (Version 2)
Quarter: 2015Q4

REPORT INFORMATION
  Report Type: Spontaneous
  Country: US (occurrence: US)
  Receive Date: 20151028
  Receipt Date: 20151201
  Transmission Date: 20160304
  Serious: Yes (Other)
  Sender: FDA-Public Use
  Company Number: PHEH2015US021496

PATIENT
  Age: 53 Year
  Sex: Male
  Weight: 190 kg

DRUGS (1)
  1. COSENTYX [Suspect]
     Active Substance: SECUKINUMAB
     Indication: PSORIASIS
     Dosage: 300 MG, QW
     Route: 058
     Dates: start: 20151002, end: 20151023

REACTIONS (18)
  - Drug eruption [Recovering/Resolving]
  - Swelling [Recovering/Resolving]
  - Glomerular filtration rate decreased [Unknown]
  - Blood glucose increased [Unknown]
  - Red blood cell count decreased [Unknown]
  - Low density lipoprotein increased [Unknown]
  - Chills [Recovering/Resolving]
  - Arthralgia [Unknown]
  - Blood cholesterol increased [Unknown]
  - Dermatitis exfoliative [Recovering/Resolving]
  - Malaise [Unknown]
  - C-reactive protein increased [Unknown]
  - Lymphocyte count decreased [Unknown]
  - Blood triglycerides increased [Unknown]
  - Blood creatinine increased [Unknown]
  - Neutrophil count increased [Unknown]
  - Eosinophil count increased [Unknown]
  - Blood uric acid increased [Unknown]

NARRATIVE: CASE EVENT DATE: 20151021
